FAERS Safety Report 10370886 (Version 1)
Quarter: 2014Q3

REPORT INFORMATION
  Report Type: Spontaneous
  Country: CL (occurrence: CL)
  Receive Date: 20140808
  Receipt Date: 20140808
  Transmission Date: 20150326
  Serious: Yes (Other)
  Sender: FDA-Public Use
  Company Number: CL-PFIZER INC-2014218668

PATIENT
  Age: 85 Year
  Sex: Male

DRUGS (6)
  1. INHIBACE ^ROCHE^ [Concomitant]
  2. CARDIOASPIRIN [Concomitant]
     Active Substance: ASPIRIN
  3. DIONDEL [Concomitant]
     Indication: ARRHYTHMIA
     Dosage: 0.5 DF, 2X/DAY
  4. LYRICA [Suspect]
     Active Substance: PREGABALIN
     Dosage: 1 DF, 2X/DAY
     Route: 048
     Dates: start: 1999
  5. ALTRULINE [Concomitant]
     Active Substance: SERTRALINE HYDROCHLORIDE
     Dosage: 1 DF, 1X/DAY
  6. VITAMIN D [Concomitant]
     Active Substance: CHOLECALCIFEROL

REACTIONS (11)
  - Osteoarthritis [Unknown]
  - Arrhythmia [Unknown]
  - Hearing impaired [Unknown]
  - Memory impairment [Unknown]
  - Somnolence [Unknown]
  - Sleep apnoea syndrome [Unknown]
  - Diabetes mellitus [Unknown]
  - Gait disturbance [Unknown]
  - Pain in extremity [Unknown]
  - Hypertension [Unknown]
  - Neuralgia [Unknown]

NARRATIVE: CASE EVENT DATE: 2004
